FAERS Safety Report 15357670 (Version 1)
Quarter: 2018Q4

REPORT INFORMATION
  Report Type: Spontaneous
  Country: US (occurrence: US)
  Receive Date: 20180906
  Receipt Date: 20180906
  Transmission Date: 20190204
  Serious: Yes (Life-Threatening)
  Sender: FDA-Public Use
  Company Number: US-FRESENIUS KABI-FK201809321

PATIENT

DRUGS (2)
  1. PENTAMIDINE INJECTION (MANUFACTURER UNKNOWN) [Suspect]
     Active Substance: PENTAMIDINE
     Indication: ANTIFUNGAL PROPHYLAXIS
     Route: 042
  2. PENTAMIDINE FOR INHALATION (MANUFACTURER UNKNOWN) [Suspect]
     Active Substance: PENTAMIDINE ISETHIONATE
     Indication: ANTIFUNGAL PROPHYLAXIS
     Route: 055

REACTIONS (1)
  - Anaphylactic reaction [Unknown]
